FAERS Safety Report 4882308-9 (Version None)
Quarter: 2006Q1

REPORT INFORMATION
  Report Type: 
  Country: None (occurrence: None)
  Receive Date: 20060117
  Receipt Date: 20060111
  Transmission Date: 20060701
  Serious: Yes (Hospitalization)
  Sender: FDA-Public Use
  Company Number: US-BOEHRINGER INGELHEIM PHARMACEUTICALS, INC.-2006-BP-00307BP

PATIENT
  Age: 84 Year
  Sex: Female

DRUGS (4)
  1. MICARDIS [Suspect]
     Indication: HYPERTENSION
     Route: 048
  2. CALCIUM CHANNEL BLOCKER [Concomitant]
     Indication: BLOOD PRESSURE MANAGEMENT
  3. DIURETIC [Concomitant]
     Indication: BLOOD PRESSURE MANAGEMENT
  4. BETA BLOCKER [Concomitant]
     Indication: BLOOD PRESSURE MANAGEMENT

REACTIONS (4)
  - BLOOD PRESSURE INCREASED [None]
  - CONVULSION [None]
  - HYPONATRAEMIA [None]
  - MYDRIASIS [None]
